FAERS Safety Report 21078294 (Version 1)
Quarter: 2022Q3

REPORT INFORMATION
  Report Type: Report from Study
  Country: US (occurrence: US)
  Receive Date: 20220713
  Receipt Date: 20220713
  Transmission Date: 20221027
  Serious: No
  Sender: FDA-Public Use
  Company Number: US-VANDA PHARMACEUTICALS, INC-2022TASUS005833

PATIENT
  Sex: Male
  Weight: 16.8 kg

DRUGS (1)
  1. HETLIOZ LQ [Suspect]
     Active Substance: TASIMELTEON
     Indication: Smith-Magenis syndrome
     Dosage: 11 MILLIGRAM, QD
     Route: 048
     Dates: start: 202107, end: 202202

REACTIONS (2)
  - Sleep disorder [Unknown]
  - Drug ineffective [Unknown]
